FAERS Safety Report 16256456 (Version 1)
Quarter: 2019Q2

REPORT INFORMATION
  Report Type: Spontaneous
  Country: US (occurrence: US)
  Receive Date: 20190430
  Receipt Date: 20190430
  Transmission Date: 20190711
  Serious: Yes (Hospitalization)
  Sender: FDA-Public Use
  Company Number: US-ABBVIE-19S-163-2750906-00

PATIENT
  Sex: Female

DRUGS (1)
  1. CREON [Suspect]
     Active Substance: PANCRELIPASE AMYLASE\PANCRELIPASE LIPASE\PANCRELIPASE PROTEASE
     Indication: PANCREATITIS
     Dosage: UNKNOWN
     Route: 048

REACTIONS (5)
  - Exposure during pregnancy [Unknown]
  - Pain [Not Recovered/Not Resolved]
  - Hospitalisation [Unknown]
  - Impaired healing [Not Recovered/Not Resolved]
  - Stress [Unknown]
